FAERS Safety Report 7514993-7 (Version None)
Quarter: 2011Q2

REPORT INFORMATION
  Report Type: 
  Country: None (occurrence: None)
  Receive Date: 20110601
  Receipt Date: 20110520
  Transmission Date: 20111010
  Serious: Yes (Hospitalization)
  Sender: FDA-Public Use
  Company Number: PHHY2011JP40629

PATIENT
  Age: 38 Year
  Sex: Male

DRUGS (3)
  1. TEGRETOL [Suspect]
     Indication: CONVULSION
     Dosage: UNK
     Route: 048
  2. PHENYTOIN [Concomitant]
     Indication: CONVULSION
     Dosage: UNK
  3. ACYCLOVIR [Concomitant]
     Indication: ENCEPHALITIS ALLERGIC
     Dosage: 1500 MG, UNK
     Route: 048

REACTIONS (1)
  - ENCEPHALITIS [None]
